FAERS Safety Report 9158234 (Version 1)
Quarter: 2013Q1

REPORT INFORMATION
  Report Type: Spontaneous
  Country: IT (occurrence: None)
  Receive Date: 20130211
  Receipt Date: 20130211
  Transmission Date: 20140127
  Serious: Yes (Hospitalization, Other)
  Sender: FDA-Public Use
  Company Number: ADR-2013-00205

PATIENT
  Sex: Female

DRUGS (1)
  1. LIORESAL [Suspect]

REACTIONS (3)
  - Pain [None]
  - Muscle spasticity [None]
  - Medical device complication [None]
